FAERS Safety Report 6528063-8 (Version None)
Quarter: 2010Q1

REPORT INFORMATION
  Report Type: 
  Country: None (occurrence: None)
  Receive Date: 20100106
  Receipt Date: 20091223
  Transmission Date: 20100710
  Serious: Yes (Hospitalization)
  Sender: FDA-Public Use
  Company Number: FR-ALEXION-A200901123

PATIENT

DRUGS (4)
  1. SOLIRIS [Suspect]
     Indication: PAROXYSMAL NOCTURNAL HAEMOGLOBINURIA
     Dosage: 900 MG, Q15D
     Route: 042
     Dates: start: 20070101, end: 20091118
  2. REMINYL                            /00382001/ [Concomitant]
  3. LEXOMIL [Concomitant]
  4. ORACILLINE                         /00001801/ [Concomitant]

REACTIONS (1)
  - ATRIAL FIBRILLATION [None]
